FAERS Safety Report 5398778-6 (Version None)
Quarter: 2007Q3

REPORT INFORMATION
  Report Type: 
  Country: None (occurrence: None)
  Receive Date: 20070724
  Receipt Date: 20070717
  Transmission Date: 20080115
  Serious: Yes (Other)
  Sender: FDA-Public Use
  Company Number: 920#8#2007-00005

PATIENT

DRUGS (3)
  1. NIFEDIPINE [Suspect]
     Indication: HYPERTENSION
     Dosage: 30MG, 2 IN 1 D,
  2. LOPINAVIR [Suspect]
     Indication: HIV INFECTION
  3. RITONAVIR [Suspect]
     Indication: HIV INFECTION

REACTIONS (4)
  - DRUG INTERACTION [None]
  - HYPOTENSION [None]
  - OEDEMA [None]
  - RENAL FAILURE ACUTE [None]
